FAERS Safety Report 13739092 (Version 1)
Quarter: 2017Q3

REPORT INFORMATION
  Report Type: Spontaneous
  Country: US (occurrence: US)
  Receive Date: 20170710
  Receipt Date: 20170710
  Transmission Date: 20171127
  Serious: No
  Sender: FDA-Public Use
  Company Number: US-SAOL THERAPEUTICS-2017SAO00822

PATIENT
  Age: 30 Year
  Sex: Female
  Weight: 62.13 kg

DRUGS (3)
  1. BACLOFEN. [Suspect]
     Active Substance: BACLOFEN
     Indication: MUSCLE SPASTICITY
     Dosage: UNK
     Route: 037
     Dates: start: 201212
  2. XARELTO [Concomitant]
     Active Substance: RIVAROXABAN
  3. BACLOFEN. [Suspect]
     Active Substance: BACLOFEN
     Indication: STIFF PERSON SYNDROME
     Dosage: 1553.3 ?G, \DAY
     Route: 037

REACTIONS (5)
  - Implant site rash [Recovered/Resolved]
  - Medical device site erythema [Unknown]
  - Medical device site discomfort [Unknown]
  - Implant site pain [Unknown]
  - Implant site swelling [Unknown]

NARRATIVE: CASE EVENT DATE: 2017
